FAERS Safety Report 7713992-X (Version None)
Quarter: 2011Q3

REPORT INFORMATION
  Report Type: 
  Country: None (occurrence: None)
  Receive Date: 20110826
  Receipt Date: 20110820
  Transmission Date: 20111222
  Serious: Yes (Other)
  Sender: FDA-Public Use
  Company Number: US-AMGEN-USASP2011038505

PATIENT
  Age: 54 Year
  Sex: Female
  Weight: 81.633 kg

DRUGS (3)
  1. PROCRIT [Suspect]
     Indication: ANAEMIA OF MALIGNANT DISEASE
     Dosage: 40000 IU, QWK
     Route: 058
     Dates: start: 20110427, end: 20110705
  2. INTERFERON [Concomitant]
     Dosage: UNK
     Dates: start: 20110316, end: 20110705
  3. RIBAVIRIN [Concomitant]
     Dosage: UNK
     Dates: start: 20110316, end: 20110705

REACTIONS (2)
  - THERAPEUTIC RESPONSE DECREASED [None]
  - APLASIA PURE RED CELL [None]
